FAERS Safety Report 8174496-6 (Version None)
Quarter: 2012Q1

REPORT INFORMATION
  Report Type: 
  Country: None (occurrence: None)
  Receive Date: 20120229
  Receipt Date: 20120224
  Transmission Date: 20120608
  Serious: Yes (Life-Threatening, Hospitalization, Disabling)
  Sender: FDA-Public Use
  Company Number: ES-ABBOTT-12P-144-0905282-00

PATIENT
  Age: 50 Year
  Sex: Female

DRUGS (5)
  1. PREDNISONE [Concomitant]
     Indication: RHEUMATOID ARTHRITIS
  2. METHOTREXATE [Concomitant]
     Indication: RHEUMATOID ARTHRITIS
     Dates: end: 20110101
  3. NSAID'S [Concomitant]
     Indication: RHEUMATOID ARTHRITIS
  4. PREDNISONE [Concomitant]
     Indication: RHEUMATOID ARTHRITIS
     Route: 048
  5. HUMIRA [Suspect]
     Indication: RHEUMATOID ARTHRITIS
     Route: 058
     Dates: start: 20091201, end: 20110101

REACTIONS (13)
  - URINARY TRACT INFECTION ENTEROCOCCAL [None]
  - RESPIRATORY FAILURE [None]
  - PARALYSIS FLACCID [None]
  - GUILLAIN-BARRE SYNDROME [None]
  - MUSCULAR WEAKNESS [None]
  - AREFLEXIA [None]
  - CAMPYLOBACTER INFECTION [None]
  - QUADRIPLEGIA [None]
  - OPHTHALMOPLEGIA [None]
  - DIPLEGIA [None]
  - DYSARTHRIA [None]
  - NEUROLOGICAL SYMPTOM [None]
  - RESPIRATORY ACIDOSIS [None]
